FAERS Safety Report 19277344 (Version 1)
Quarter: 2021Q2

REPORT INFORMATION
  Report Type: Other
  Country: JP (occurrence: JP)
  Receive Date: 20210519
  Receipt Date: 20210519
  Transmission Date: 20210717
  Serious: Yes (Death, Hospitalization, Other)
  Sender: FDA-Public Use
  Company Number: JP-SQUARE-000018

PATIENT
  Age: 89 Year
  Sex: Male

DRUGS (2)
  1. ACYCLOVIR. [Suspect]
     Active Substance: ACYCLOVIR
     Indication: HERPES SIMPLEX
     Dosage: 1,500 MG / DAY
  2. FUROSEMIDE. [Concomitant]
     Active Substance: FUROSEMIDE
     Indication: CARDIAC FAILURE
     Route: 048

REACTIONS (6)
  - Pneumonia aspiration [Fatal]
  - Disease progression [Fatal]
  - Herpes simplex encephalitis [Fatal]
  - Drug ineffective [Fatal]
  - Depressed level of consciousness [Fatal]
  - Respiratory failure [Fatal]
